FAERS Safety Report 10619574 (Version 9)
Quarter: 2017Q2

REPORT INFORMATION
  Report Type: Spontaneous
  Country: US (occurrence: US)
  Receive Date: 20141202
  Receipt Date: 20170526
  Transmission Date: 20170829
  Serious: Yes (Hospitalization, Disabling, Other)
  Sender: FDA-Public Use
  Company Number: US-009507513-1204USA03744

PATIENT
  Sex: Male
  Weight: 81.63 kg

DRUGS (2)
  1. PROPECIA [Suspect]
     Active Substance: FINASTERIDE
     Indication: ALOPECIA
     Dosage: 1 MG, QD
     Route: 048
     Dates: start: 201007, end: 201104
  2. FINASTERIDE. [Suspect]
     Active Substance: FINASTERIDE
     Indication: ALOPECIA
     Dosage: 1 MG, QD
     Route: 048
     Dates: start: 201009

REACTIONS (43)
  - Suicidal ideation [Recovered/Resolved]
  - Premature ejaculation [Not Recovered/Not Resolved]
  - Penile size reduced [Unknown]
  - Testicular atrophy [Not Recovered/Not Resolved]
  - Perineal pain [Unknown]
  - Urinary hesitation [Unknown]
  - Peyronie^s disease [Unknown]
  - Testicular failure [Unknown]
  - Prostatitis [Not Recovered/Not Resolved]
  - Anxiety [Not Recovered/Not Resolved]
  - Ejaculation failure [Not Recovered/Not Resolved]
  - Insomnia [Not Recovered/Not Resolved]
  - Weight decreased [Unknown]
  - Renal failure [Unknown]
  - Chronic kidney disease [Not Recovered/Not Resolved]
  - Sexual dysfunction [Not Recovered/Not Resolved]
  - Back pain [Unknown]
  - Renal impairment [Unknown]
  - Libido decreased [Not Recovered/Not Resolved]
  - Dysuria [Not Recovered/Not Resolved]
  - Prostatic disorder [Unknown]
  - Blood creatine increased [Unknown]
  - Irritable bowel syndrome [Unknown]
  - Testicular pain [Unknown]
  - Skin irritation [Unknown]
  - Muscle strain [Unknown]
  - Prostatitis [Not Recovered/Not Resolved]
  - Painful ejaculation [Unknown]
  - Myalgia [Unknown]
  - Male orgasmic disorder [Unknown]
  - Major depression [Not Recovered/Not Resolved]
  - Erectile dysfunction [Not Recovered/Not Resolved]
  - Diarrhoea [Unknown]
  - Urethritis [Unknown]
  - Metabolic syndrome [Unknown]
  - Arterial insufficiency [Unknown]
  - Back pain [Unknown]
  - Cognitive disorder [Not Recovered/Not Resolved]
  - Adverse event [Unknown]
  - Bladder wall calcification [Unknown]
  - Fatigue [Unknown]
  - Skin disorder [Unknown]
  - Musculoskeletal pain [Unknown]

NARRATIVE: CASE EVENT DATE: 2010
